FAERS Safety Report 6585755-2 (Version None)
Quarter: 2010Q1

REPORT INFORMATION
  Report Type: 
  Country: None (occurrence: None)
  Receive Date: 20100204
  Receipt Date: 20100121
  Transmission Date: 20100710
  Serious: Yes (Other)
  Sender: FDA-Public Use
  Company Number: 2010S1000449

PATIENT
  Age: 54 Year
  Sex: Male

DRUGS (5)
  1. PHOSPHOSODA FLAVOR NOT SPECIFIED [Suspect]
     Indication: COLONOSCOPY
     Dosage: 90 ML; TOTAL; PO
     Route: 048
     Dates: start: 20020401, end: 20020401
  2. INSULIN [Concomitant]
  3. AMLODIPINE BESYLATE [Concomitant]
  4. METOPROLOL TARTRATE [Concomitant]
  5. FUROSEMIDE [Concomitant]

REACTIONS (2)
  - DIALYSIS [None]
  - RENAL DISORDER [None]
